FAERS Safety Report 10042851 (Version 3)
Quarter: 2014Q2

REPORT INFORMATION
  Report Type: Spontaneous
  Country: US (occurrence: US)
  Receive Date: 20140327
  Receipt Date: 20140407
  Transmission Date: 20141212
  Serious: Yes (Hospitalization, Other)
  Sender: FDA-Public Use
  Company Number: PHEH2014US001332

PATIENT
  Sex: Female

DRUGS (10)
  1. EXFORGE [Suspect]
     Indication: HYPERTENSION
     Dosage: 1 DF (160 MG VALS AND 5 MG AMLO), UNK
     Route: 048
  2. EXFORGE [Suspect]
     Dosage: 0.5 DF (160 MG VALS/5 MG AMLO) UKN
     Route: 048
  3. SYNTHROID [Concomitant]
     Dosage: 112 MG, UNK
  4. TORSEMIDE [Concomitant]
     Dosage: 10 MG, TID
  5. ASPIRIN [Concomitant]
     Dosage: 82 MG, UNK
  6. CLONIDINE [Concomitant]
     Dosage: 1 MG, TID
  7. ISOSORBIDE [Concomitant]
     Dosage: 60 MG, UNK
  8. ALPRAZOLAM [Concomitant]
     Indication: ANXIETY
     Dosage: 2.5 MG, TID
  9. CENTRUM SILVER [Concomitant]
  10. LANTUS [Concomitant]

REACTIONS (6)
  - Fluid retention [Unknown]
  - Oedema peripheral [Unknown]
  - Feeling abnormal [Unknown]
  - Nervousness [Unknown]
  - Dyspnoea [Unknown]
  - Wrong technique in drug usage process [Unknown]
